FAERS Safety Report 18396098 (Version 1)
Quarter: 2020Q4

REPORT INFORMATION
  Report Type: Spontaneous
  Country: FR (occurrence: FR)
  Receive Date: 20201019
  Receipt Date: 20201019
  Transmission Date: 20210114
  Serious: Yes (Other)
  Sender: FDA-Public Use
  Company Number: FR-BEH-2020123449

PATIENT
  Sex: Female

DRUGS (1)
  1. PRIVIGEN [Suspect]
     Active Substance: HUMAN IMMUNOGLOBULIN G
     Dosage: AT LEAST 02 VIALS OF PRIVIGEN 20 GRAMS
     Route: 065

REACTIONS (5)
  - No adverse event [Unknown]
  - Exposure during pregnancy [Unknown]
  - Cytomegalovirus test positive [Unknown]
  - Campylobacter test positive [Unknown]
  - Suspected transmission of an infectious agent via product [Unknown]
